FAERS Safety Report 20611839 (Version 2)
Quarter: 2024Q3

REPORT INFORMATION
  Report Type: Spontaneous
  Country: DE (occurrence: DE)
  Receive Date: 20220318
  Receipt Date: 20240710
  Transmission Date: 20241017
  Serious: No
  Sender: ASTELLAS
  Company Number: DE-ASTELLAS-2022US010211

PATIENT
  Sex: Male

DRUGS (1)
  1. PADCEV [Suspect]
     Active Substance: ENFORTUMAB VEDOTIN-EJFV
     Indication: Product used for unknown indication
     Dosage: UNK UNK, CYCLIC (PATIENT GOT 2 TREATMENT CYCLES)
     Route: 065

REACTIONS (1)
  - Full blood count abnormal [Unknown]
